FAERS Safety Report 5604862-1 (Version None)
Quarter: 2008Q1

REPORT INFORMATION
  Report Type: 
  Country: None (occurrence: None)
  Receive Date: 20080123
  Receipt Date: 20080111
  Transmission Date: 20080703
  Serious: Yes (Hospitalization, Other)
  Sender: FDA-Public Use
  Company Number: 238037K07USA

PATIENT
  Age: 16 Year
  Sex: Female
  Weight: 48.5349 kg

DRUGS (1)
  1. REBIF [Suspect]
     Indication: OFF LABEL USE
     Dosage: 44 MCG, 3 IN 1 WEEKS, SUBCUTANEOUS
     Route: 058
     Dates: start: 20060727, end: 20070101

REACTIONS (6)
  - INAPPROPRIATE DEVICE PROGRAMMING [None]
  - INJECTION SITE ERYTHEMA [None]
  - INJECTION SITE NECROSIS [None]
  - OFF LABEL USE [None]
  - PYREXIA [None]
  - RASH [None]
